FAERS Safety Report 17183348 (Version 1)
Quarter: 2019Q4

REPORT INFORMATION
  Report Type: Spontaneous
  Country: US (occurrence: US)
  Receive Date: 20191220
  Receipt Date: 20191220
  Transmission Date: 20200122
  Serious: Yes (Other)
  Sender: FDA-Public Use
  Company Number: US-ACCORD-166931

PATIENT
  Age: 60 Year
  Sex: Female

DRUGS (3)
  1. ACITRETIN. [Concomitant]
     Active Substance: ACITRETIN
     Indication: SQUAMOUS CELL CARCINOMA OF SKIN
  2. FLUOROURACIL. [Suspect]
     Active Substance: FLUOROURACIL
     Indication: SQUAMOUS CELL CARCINOMA OF SKIN
     Dosage: CHEMOWRAPS
     Route: 061
  3. FLUOROURACIL. [Suspect]
     Active Substance: FLUOROURACIL
     Indication: SQUAMOUS CELL CARCINOMA OF SKIN
     Dosage: 0.1-0.5 MG/NODULE
     Route: 026

REACTIONS (5)
  - Erythema [Unknown]
  - Off label use [Unknown]
  - Infected skin ulcer [Recovered/Resolved]
  - Oedema peripheral [Unknown]
  - Pain in extremity [Recovered/Resolved]
